FAERS Safety Report 11569385 (Version 1)
Quarter: 2015Q3

REPORT INFORMATION
  Report Type: Report from Study
  Country: US (occurrence: US)
  Receive Date: 20150929
  Receipt Date: 20150929
  Transmission Date: 20151125
  Serious: Yes (Hospitalization, Other)
  Sender: FDA-Public Use
  Company Number: US-BAYER-2015-402722

PATIENT
  Age: 58 Year
  Sex: Male

DRUGS (3)
  1. NEXAVAR [Suspect]
     Active Substance: SORAFENIB
     Indication: HEPATIC CANCER
     Dosage: 400 MG, BID
     Route: 048
     Dates: start: 20150729, end: 2015
  2. NEXAVAR [Suspect]
     Active Substance: SORAFENIB
     Indication: HEPATIC CANCER
     Dosage: 400 MG, BID
     Route: 048
     Dates: start: 2015
  3. REVLIMID [Concomitant]
     Active Substance: LENALIDOMIDE

REACTIONS (13)
  - Haematoma [Not Recovered/Not Resolved]
  - Ascites [None]
  - Rash [None]
  - Diarrhoea [None]
  - Skin irritation [None]
  - Abdominal discomfort [None]
  - Localised intraabdominal fluid collection [None]
  - Abdominal pain upper [Recovered/Resolved]
  - Abdominal distension [None]
  - Cheilitis [None]
  - Abdominal distension [None]
  - Infection [None]
  - Abscess limb [Not Recovered/Not Resolved]

NARRATIVE: CASE EVENT DATE: 2015
